FAERS Safety Report 4920716-8 (Version None)
Quarter: 2006Q1

REPORT INFORMATION
  Report Type: 
  Country: None (occurrence: None)
  Receive Date: 20060223
  Receipt Date: 20060213
  Transmission Date: 20060701
  Serious: Yes (Death)
  Sender: FDA-Public Use
  Company Number: AT-ABBOTT-06P-009-0324837-00

PATIENT
  Age: 84 Year
  Sex: Female
  Weight: 81 kg

DRUGS (3)
  1. ZEMPLAR [Suspect]
     Indication: HYPERPARATHYROIDISM
     Route: 042
     Dates: start: 20051031, end: 20051207
  2. ZEMPLAR [Suspect]
     Route: 042
     Dates: start: 20051010, end: 20051031
  3. AMIODARONE HYDROCHLORIDE [Concomitant]
     Indication: ATRIAL FIBRILLATION
     Route: 065
     Dates: start: 20040101, end: 20051207

REACTIONS (2)
  - PYREXIA [None]
  - SKIN ULCER [None]
